FAERS Safety Report 8239799-5 (Version None)
Quarter: 2012Q1

REPORT INFORMATION
  Report Type: 
  Country: None (occurrence: None)
  Receive Date: 20120328
  Receipt Date: 20120315
  Transmission Date: 20120608
  Serious: Yes (Death)
  Sender: FDA-Public Use
  Company Number: CU-ASTELLAS-2012US003011

PATIENT
  Age: 47 Year
  Sex: Male

DRUGS (1)
  1. AMBISOME [Suspect]
     Indication: MENINGITIS CRYPTOCOCCAL
     Dosage: 0.7 MG/KG, UID/QD
     Route: 042

REACTIONS (1)
  - DRUG INEFFECTIVE [None]
